FAERS Safety Report 20729179 (Version 1)
Quarter: 2022Q2

REPORT INFORMATION
  Report Type: Spontaneous
  Country: ES (occurrence: ES)
  Receive Date: 20220420
  Receipt Date: 20220420
  Transmission Date: 20220720
  Serious: Yes (Other)
  Sender: FDA-Public Use
  Company Number: None

PATIENT
  Age: 86 Year
  Sex: Male

DRUGS (5)
  1. ENOXAPARIN SODIUM [Suspect]
     Active Substance: ENOXAPARIN SODIUM
     Dosage: UNK
     Dates: start: 20200408
  2. HYDROXYCHLOROQUINE SULFATE [Concomitant]
     Active Substance: HYDROXYCHLOROQUINE SULFATE
     Indication: COVID-19
     Dosage: 400 MG/12 HOURS THE FIRST DAY AND THE REST 200 MG/12 HOURS
     Route: 048
     Dates: start: 20200323, end: 20200330
  3. LOPINAVIR\RITONAVIR [Concomitant]
     Active Substance: LOPINAVIR\RITONAVIR
     Indication: COVID-19
     Dosage: 400/100MG/12 HOURS
     Route: 048
     Dates: start: 20200323, end: 20200401
  4. LEVOFLOXACIN [Concomitant]
     Active Substance: LEVOFLOXACIN
     Dosage: 500 MG, QD
     Route: 042
     Dates: start: 20200323, end: 20200323
  5. METHYLPREDNISOLONE [Concomitant]
     Active Substance: METHYLPREDNISOLONE
     Dosage: START WITH 40 MG/12 HOURS FOR 4 DAYS AND THEN TAPER DOWN
     Route: 042
     Dates: start: 20200329, end: 20200409

REACTIONS (1)
  - Hepatitis acute [Recovered/Resolved]
